FAERS Safety Report 7383274-7 (Version None)
Quarter: 2011Q1

REPORT INFORMATION
  Report Type: 
  Country: None (occurrence: None)
  Receive Date: 20110330
  Receipt Date: 20110325
  Transmission Date: 20110831
  Serious: Yes (Death, Hospitalization, Other)
  Sender: FDA-Public Use
  Company Number: PHHO2011PL05444

PATIENT
  Sex: Male
  Weight: 82 kg

DRUGS (11)
  1. COMPARATOR ENALAPRIL [Suspect]
     Indication: CARDIAC FAILURE
  2. FUROSEMIDE [Concomitant]
  3. BLINDED ENALAPRIL [Suspect]
     Dosage: CODE NOT BROKEN
     Route: 048
     Dates: start: 20110114
  4. BLINDED NO TREATMENT RECEIVED [Suspect]
     Dosage: CODE NOT BROKEN
     Route: 048
     Dates: start: 20110114
  5. ALISKIREN [Suspect]
     Indication: CARDIAC FAILURE
  6. POTASSIUM CHLORIDE [Concomitant]
  7. BISOPROLOL [Concomitant]
  8. ASPIRIN [Concomitant]
  9. ACENOCOUMAROL [Concomitant]
  10. BLINDED ALISKIREN [Suspect]
     Dosage: CODE NOT BROKEN
     Route: 048
     Dates: start: 20110114
  11. ATORVASTATIN CALCIUM [Concomitant]

REACTIONS (5)
  - RESUSCITATION [None]
  - CARDIAC ARREST [None]
  - HYPOKALAEMIA [None]
  - PERCUTANEOUS CORONARY INTERVENTION [None]
  - VENTRICULAR FIBRILLATION [None]
